FAERS Safety Report 9800572 (Version 2)
Quarter: 2014Q3

REPORT INFORMATION
  Report Type: Report from Study
  Country: US (occurrence: US)
  Receive Date: 20140107
  Receipt Date: 20140709
  Transmission Date: 20150326
  Serious: Yes (Hospitalization, Other)
  Sender: FDA-Public Use
  Company Number: US-ALEXION PHARMACEUTICALS INC.-A201304577

PATIENT

DRUGS (1)
  1. SOLIRIS [Suspect]
     Active Substance: ECULIZUMAB
     Indication: HAEMOLYTIC URAEMIC SYNDROME
     Dosage: UNK
     Route: 042

REACTIONS (9)
  - Hemiparesis [Unknown]
  - Peritoneal dialysis [Unknown]
  - Cerebrovascular accident [Unknown]
  - Blood creatinine abnormal [Unknown]
  - Hypertension [Unknown]
  - Pain [Unknown]
  - Sepsis [Unknown]
  - Pancreatitis [Unknown]
  - Convulsion [Unknown]

NARRATIVE: CASE EVENT DATE: 2013
